FAERS Safety Report 8125591-9 (Version None)
Quarter: 2012Q1

REPORT INFORMATION
  Report Type: 
  Country: None (occurrence: None)
  Receive Date: 20120209
  Receipt Date: 20120203
  Transmission Date: 20120608
  Serious: Yes (Hospitalization, Other)
  Sender: FDA-Public Use
  Company Number: US-PFIZER INC-2011151646

PATIENT
  Sex: Female

DRUGS (1)
  1. CHANTIX [Suspect]
     Indication: SMOKING CESSATION THERAPY
     Dosage: UNK
     Dates: start: 20070101, end: 20080101

REACTIONS (11)
  - INTENTIONAL OVERDOSE [None]
  - POST-TRAUMATIC STRESS DISORDER [None]
  - ANXIETY [None]
  - PAIN [None]
  - SUICIDE ATTEMPT [None]
  - INSOMNIA [None]
  - EMOTIONAL DISORDER [None]
  - PSYCHOTIC DISORDER [None]
  - BORDERLINE PERSONALITY DISORDER [None]
  - DEPRESSION [None]
  - BUNDLE BRANCH BLOCK LEFT [None]
